FAERS Safety Report 5795880-1 (Version None)
Quarter: 2008Q3

REPORT INFORMATION
  Report Type: 
  Country: None (occurrence: None)
  Receive Date: 20080701
  Receipt Date: 20080626
  Transmission Date: 20090109
  Serious: Yes (Other)
  Sender: FDA-Public Use
  Company Number: US-RANBAXY-2008RR-15833

PATIENT

DRUGS (4)
  1. MINOCYCLINE HYDROCHLORIDE [Suspect]
     Indication: ACNE
     Dosage: 150 MG, QD
     Route: 048
  2. DIFFERIN [Concomitant]
     Indication: ACNE
     Dosage: UNK
     Route: 061
  3. TRIAZ [Concomitant]
     Route: 061
  4. ESTROSTEP [Concomitant]
     Indication: CONTRACEPTION
     Route: 048

REACTIONS (1)
  - DEPERSONALISATION [None]
